FAERS Safety Report 6143816-6 (Version None)
Quarter: 2009Q2

REPORT INFORMATION
  Report Type: 
  Country: None (occurrence: None)
  Receive Date: 20090403
  Receipt Date: 20090401
  Transmission Date: 20091009
  Serious: Yes (Death, Hospitalization, Other)
  Sender: FDA-Public Use
  Company Number: PHHY2008GB18308

PATIENT
  Age: 89 Year
  Sex: Male

DRUGS (8)
  1. ACLASTA [Suspect]
     Indication: OSTEITIS DEFORMANS
     Dosage: 5 MG, ONCE/SINGLE
     Route: 042
     Dates: start: 20080605
  2. NAPROXEN [Suspect]
     Indication: ANALGESIA
     Dosage: 500 MG, BID
     Route: 048
     Dates: end: 20080601
  3. ADCAL-D3 [Concomitant]
     Dosage: 1 DF, UNK
     Route: 048
     Dates: start: 20080530, end: 20080613
  4. BUPRENORPHINE HCL [Concomitant]
     Indication: ANALGESIA
     Dosage: 5 MCG
     Route: 061
     Dates: start: 20080530
  5. FUNGILIN [Concomitant]
     Indication: ORAL CANDIDIASIS
     Dosage: 1 DF, QID
     Route: 048
     Dates: start: 20080529, end: 20080603
  6. LANSOPRAZOLE [Concomitant]
     Dosage: 30 MG
     Route: 048
  7. LATANOPROST [Concomitant]
     Indication: GLAUCOMA
     Dosage: 1 DF, QD
     Route: 031
  8. ORAMORPH SR [Concomitant]
     Indication: ANALGESIA
     Dosage: 5 MG, PRN
     Route: 048
     Dates: start: 20080604

REACTIONS (14)
  - ASTHENIA [None]
  - BLOOD CALCIUM DECREASED [None]
  - BLOOD CREATININE INCREASED [None]
  - BLOOD POTASSIUM INCREASED [None]
  - BLOOD SODIUM INCREASED [None]
  - BLOOD UREA DECREASED [None]
  - DEHYDRATION [None]
  - GENERAL PHYSICAL HEALTH DETERIORATION [None]
  - HEART RATE INCREASED [None]
  - LOWER RESPIRATORY TRACT INFECTION [None]
  - PAIN [None]
  - PNEUMONIA [None]
  - PYREXIA [None]
  - RENAL FAILURE ACUTE [None]
